FAERS Safety Report 9055624 (Version 1)
Quarter: 2013Q1

REPORT INFORMATION
  Report Type: Spontaneous
  Country: US (occurrence: US)
  Receive Date: 20130206
  Receipt Date: 20130206
  Transmission Date: 20140127
  Serious: No
  Sender: FDA-Public Use
  Company Number: US-ASTRAZENECA-2013SE06006

PATIENT
  Age: 82 Year
  Sex: Female
  Weight: 45.4 kg

DRUGS (7)
  1. SYMBICORT [Suspect]
     Indication: CHRONIC OBSTRUCTIVE PULMONARY DISEASE
     Dosage: 160/4.5MCG, 2 PUFFS BID
     Route: 055
  2. ALBUTEROL [Concomitant]
  3. CLARITHROMYCIN [Concomitant]
  4. PREDNISONE [Concomitant]
  5. ROBITUSSIN [Concomitant]
  6. MUCINEX [Concomitant]
  7. XANAX [Concomitant]

REACTIONS (6)
  - Pain in extremity [Unknown]
  - Panic attack [Unknown]
  - Somnolence [Unknown]
  - Pain [Unknown]
  - Pyrexia [Unknown]
  - Muscle spasms [Unknown]
